FAERS Safety Report 10248662 (Version 1)
Quarter: 2014Q2

REPORT INFORMATION
  Report Type: Spontaneous
  Country: FR (occurrence: FR)
  Receive Date: 20140620
  Receipt Date: 20140620
  Transmission Date: 20141212
  Serious: Yes (Life-Threatening, Hospitalization, Other)
  Sender: FDA-Public Use
  Company Number: FR-ACCORD-024318

PATIENT
  Age: 62 Year
  Sex: Male

DRUGS (10)
  1. BISOPROLOL [Concomitant]
     Dosage: SCORED FILM-COATED TABLET
     Route: 048
  2. ASPEGIC ENFANTS [Concomitant]
     Route: 048
  3. FLUOROURACILE ACCORD [Suspect]
     Indication: COLORECTAL CANCER METASTATIC
     Dosage: 2ND COURSE. 400 MG/M? BOLUS AND 2400 MG/M? INFUSION. STRENGTH: 50 MG/ML
     Route: 040
     Dates: start: 20140225, end: 20140225
  4. FOLINIC ACID [Concomitant]
     Dosage: 2ND COURSE OF FOLFOX THERAPY
     Dates: start: 20140225, end: 20140225
  5. OXALIPLATIN ACCORD [Suspect]
     Indication: COLORECTAL CANCER METASTATIC
     Dosage: 2ND COURSE, STRENGTH: 5 MG/ML
     Route: 042
     Dates: start: 20140225, end: 20140225
  6. CIBADREX [Concomitant]
     Indication: HYPERTENSION
     Dosage: 10 MG/12.5 MG, SCORED FILM-COATED TABLET
     Route: 048
  7. HYPERIUM [Concomitant]
     Indication: HYPERTENSION
     Route: 048
  8. FENOFIBRATE [Concomitant]
     Indication: DYSLIPIDAEMIA
     Route: 048
  9. ALLOPURINOL [Concomitant]
  10. LERCANIDIPINE [Concomitant]
     Indication: HYPERTENSION
     Route: 048

REACTIONS (3)
  - Anaemia [Unknown]
  - Renal tubular necrosis [Recovering/Resolving]
  - Renal failure acute [Recovering/Resolving]
